FAERS Safety Report 6128049-1 (Version None)
Quarter: 2009Q1

REPORT INFORMATION
  Report Type: 
  Country: None (occurrence: None)
  Receive Date: 20090323
  Receipt Date: 20090311
  Transmission Date: 20090719
  Serious: Yes (Hospitalization, Disabling)
  Sender: FDA-Public Use
  Company Number: US-MERCK-0810USA05280

PATIENT
  Age: 57 Year
  Sex: Female

DRUGS (1)
  1. FOSAMAX [Suspect]
     Indication: OSTEOPOROSIS
     Route: 048
     Dates: start: 19990101, end: 20070529

REACTIONS (12)
  - BONE DISORDER [None]
  - BONE PAIN [None]
  - DENTAL CARIES [None]
  - DIVERTICULITIS [None]
  - JAW DISORDER [None]
  - ORAL DISORDER [None]
  - OSTEONECROSIS [None]
  - RIB FRACTURE [None]
  - SPINAL CORD COMPRESSION [None]
  - SPINAL FRACTURE [None]
  - TOOTH FRACTURE [None]
  - TOOTH LOSS [None]
